FAERS Safety Report 15382685 (Version 3)
Quarter: 2019Q1

REPORT INFORMATION
  Report Type: Spontaneous
  Country: US (occurrence: US)
  Receive Date: 20180913
  Receipt Date: 20190326
  Transmission Date: 20190417
  Serious: Yes (Other)
  Sender: FDA-Public Use
  Company Number: US-INCYTE CORPORATION-2018IN009112

PATIENT

DRUGS (1)
  1. JAKAFI [Suspect]
     Active Substance: RUXOLITINIB
     Indication: MYELOFIBROSIS
     Dosage: 20 MG, BID
     Route: 048
     Dates: start: 20180817

REACTIONS (10)
  - Dehydration [Not Recovered/Not Resolved]
  - Urinary tract infection [Not Recovered/Not Resolved]
  - Abdominal pain upper [Unknown]
  - Sleep disorder [Unknown]
  - Micturition disorder [Unknown]
  - Splenomegaly [Unknown]
  - Balance disorder [Unknown]
  - Haemoglobin decreased [Unknown]
  - Eye disorder [Unknown]
  - Dizziness [Not Recovered/Not Resolved]
